FAERS Safety Report 15164937 (Version 1)
Quarter: 2018Q4

REPORT INFORMATION
  Report Type: Spontaneous
  Country: US (occurrence: US)
  Receive Date: 20180719
  Receipt Date: 20180719
  Transmission Date: 20190204
  Serious: No
  Sender: FDA-Public Use
  Company Number: US-RICON PHARMA, LLC-RIC201806-000636

PATIENT
  Sex: Female

DRUGS (2)
  1. CHLORTHALIDONE 25 MG TABLETS [Suspect]
     Active Substance: CHLORTHALIDONE
     Indication: POLYURIA
  2. HYDRALAZINE [Concomitant]
     Active Substance: HYDRALAZINE HYDROCHLORIDE
     Indication: HYPERTENSION

REACTIONS (3)
  - Condition aggravated [Unknown]
  - Product dose omission [Unknown]
  - Peripheral swelling [Not Recovered/Not Resolved]
